FAERS Safety Report 21937264 (Version 1)
Quarter: 2023Q1

REPORT INFORMATION
  Report Type: Report from Study
  Country: EG (occurrence: EG)
  Receive Date: 20230201
  Receipt Date: 20230201
  Transmission Date: 20230417
  Serious: Yes (Other)
  Sender: FDA-Public Use
  Company Number: EG-002147023-NVSC2023EG001729

PATIENT
  Age: 55 Year
  Sex: Male

DRUGS (4)
  1. ELTROMBOPAG OLAMINE [Suspect]
     Active Substance: ELTROMBOPAG OLAMINE
     Indication: Thrombocytopenia
     Dosage: 1 DOSAGE FORM, QD (1 TAB PER DAY)
     Route: 048
     Dates: start: 20221229, end: 20230124
  2. URSODIOL [Concomitant]
     Active Substance: URSODIOL
     Indication: Liver disorder
     Dosage: 1 DOSAGE FORM, TID
     Route: 065
     Dates: start: 20230124
  3. NEXAVAR [Concomitant]
     Active Substance: SORAFENIB
     Indication: Liver disorder
     Dosage: 1 DOSAGE FORM, QD (FIRST WEEK, STARTED 14 DAYS AGO)
     Route: 048
  4. NEXAVAR [Concomitant]
     Active Substance: SORAFENIB
     Dosage: 2 DOSAGE FORM, QD (SECOND WEEK)
     Route: 048
     Dates: end: 20230124

REACTIONS (15)
  - Constipation [Not Recovered/Not Resolved]
  - Anal inflammation [Not Recovered/Not Resolved]
  - Anal injury [Not Recovered/Not Resolved]
  - Jaundice [Not Recovered/Not Resolved]
  - Pain [Not Recovered/Not Resolved]
  - Laziness [Not Recovered/Not Resolved]
  - Asthenopia [Not Recovered/Not Resolved]
  - Dry eye [Not Recovered/Not Resolved]
  - Headache [Not Recovered/Not Resolved]
  - Eye pain [Not Recovered/Not Resolved]
  - Fatigue [Not Recovered/Not Resolved]
  - Balance disorder [Not Recovered/Not Resolved]
  - Abdominal discomfort [Not Recovered/Not Resolved]
  - Polyuria [Unknown]
  - Muscle spasms [Recovered/Resolved]

NARRATIVE: CASE EVENT DATE: 20221201
